FAERS Safety Report 8095467-4 (Version None)
Quarter: 2011Q4

REPORT INFORMATION
  Report Type: 
  Country: None (occurrence: None)
  Receive Date: 20111222
  Receipt Date: 20110929
  Transmission Date: 20120403
  Serious: Yes (Hospitalization)
  Sender: FDA-Public Use
  Company Number: UTC-010724

PATIENT
  Age: 69 Year
  Sex: Male
  Weight: 120.4 kg

DRUGS (3)
  1. COUMADIN [Concomitant]
  2. TYVASO [Suspect]
     Indication: PULMONARY ARTERIAL HYPERTENSION
     Dosage: 18 TO 54 MICROGRAMS (4 IN 1 D) INHALATION
     Route: 055
     Dates: start: 20100802
  3. ADCIRCA [Concomitant]

REACTIONS (3)
  - NONSPECIFIC REACTION [None]
  - TREATMENT NONCOMPLIANCE [None]
  - INFECTION [None]
